FAERS Safety Report 9503813 (Version 3)
Quarter: 2013Q3

REPORT INFORMATION
  Report Type: Spontaneous
  Country: JP (occurrence: JP)
  Receive Date: 20130906
  Receipt Date: 20130916
  Transmission Date: 20140515
  Serious: Yes (Hospitalization, Other)
  Sender: FDA-Public Use
  Company Number: JP-JNJFOC-20130717852

PATIENT
  Age: 63 Year
  Sex: Male

DRUGS (8)
  1. FINIBAX [Suspect]
     Indication: INFECTIOUS PLEURAL EFFUSION
     Route: 041
     Dates: start: 20130628, end: 20130723
  2. ETIZOLAM [Concomitant]
     Indication: INSOMNIA
     Route: 048
     Dates: start: 20130626
  3. LOXOPROFEN [Concomitant]
     Indication: INFECTIOUS PLEURAL EFFUSION
     Route: 048
     Dates: start: 20130626
  4. TEPRENONE [Concomitant]
     Indication: INFECTIOUS PLEURAL EFFUSION
     Route: 048
     Dates: start: 20130626
  5. VOLTAREN [Concomitant]
     Indication: INFECTIOUS PLEURAL EFFUSION
     Route: 054
     Dates: start: 20130627, end: 20130701
  6. POSTERISAN [Concomitant]
     Indication: HAEMORRHOIDS
     Route: 061
     Dates: start: 20130709
  7. CARBAZOCHROME SODIUM SULFONATE [Concomitant]
     Indication: HAEMOPTYSIS
     Route: 048
     Dates: start: 20130706, end: 20130708
  8. TRANSAMIN [Concomitant]
     Indication: HAEMOPTYSIS
     Route: 048
     Dates: start: 20130706, end: 20130708

REACTIONS (2)
  - Agranulocytosis [Recovered/Resolved]
  - White blood cell count decreased [Recovered/Resolved]
